FAERS Safety Report 9887519 (Version 1)
Quarter: 2013Q4

REPORT INFORMATION
  Report Type: Spontaneous
  Country: US (occurrence: None)
  Receive Date: 20131223
  Receipt Date: 20131223
  Transmission Date: 20140711
  Serious: No
  Sender: FDA-Public Use
  Company Number: 217823LEO

PATIENT
  Age: 35 Year
  Sex: Female

DRUGS (1)
  1. PICATO (0.015 %, GEL) [Suspect]
     Indication: ACTINIC KERATOSIS
     Dosage: QD X 3 DAYS, TOPICAL, GEL
     Dates: start: 20120528, end: 20120530

REACTIONS (4)
  - Application site erythema [None]
  - Application site burn [None]
  - Application site vesicles [None]
  - Drug administration error [None]
